FAERS Safety Report 20638422 (Version 1)
Quarter: 2022Q1

REPORT INFORMATION
  Report Type: Spontaneous
  Country: US (occurrence: US)
  Receive Date: 20220325
  Receipt Date: 20220325
  Transmission Date: 20220423
  Serious: No
  Sender: FDA-Public Use
  Company Number: US-ORGANON-O2203USA002220

PATIENT
  Sex: Female

DRUGS (2)
  1. ETHINYL ESTRADIOL\ETONOGESTREL [Suspect]
     Active Substance: ETHINYL ESTRADIOL\ETONOGESTREL
     Dosage: 0.12MG/0.015MG, 1 3 RINGS) (66993-605-36)
     Route: 067
     Dates: start: 202110
  2. ETHINYL ESTRADIOL\ETONOGESTREL [Suspect]
     Active Substance: ETHINYL ESTRADIOL\ETONOGESTREL
     Dosage: 0.12MG/0.015MG, 1 3 RINGS) (66993-605-36)
     Route: 067
     Dates: start: 20220317

REACTIONS (2)
  - Intermenstrual bleeding [Not Recovered/Not Resolved]
  - Incorrect product administration duration [Unknown]

NARRATIVE: CASE EVENT DATE: 20220301
